FAERS Safety Report 7965898-9 (Version None)
Quarter: 2011Q4

REPORT INFORMATION
  Report Type: 
  Country: None (occurrence: None)
  Receive Date: 20111208
  Receipt Date: 20111202
  Transmission Date: 20120403
  Serious: Yes (Other)
  Sender: FDA-Public Use
  Company Number: US-GLAXOSMITHKLINE-A0957160A

PATIENT
  Age: 91 Year
  Sex: Male

DRUGS (2)
  1. ALBUTEROL [Concomitant]
  2. ADVAIR DISKUS 100/50 [Suspect]
     Indication: DYSPNOEA
     Route: 055

REACTIONS (4)
  - UNDERDOSE [None]
  - CONDITION AGGRAVATED [None]
  - PRODUCT QUALITY ISSUE [None]
  - ASTHMA [None]
